FAERS Safety Report 8778413 (Version 1)
Quarter: 2012Q4

REPORT INFORMATION
  Report Type: 
  Country: US (occurrence: US)
  Receive Date: 20120912
  Receipt Date: 20120912
  Transmission Date: 20130627
  Serious: Yes (Other)
  Sender: FDA-Public Use
  Company Number: US-SANOFI-AVENTIS-2012SA064641

PATIENT
  Age: 90 Year
  Sex: Male

DRUGS (8)
  1. PLAVIX [Suspect]
     Route: 065
     Dates: start: 200911
  2. DIGOXIN [Concomitant]
  3. AZOPT [Concomitant]
  4. ZANTAC [Concomitant]
  5. UROXATRAL [Concomitant]
  6. AVODART [Concomitant]
  7. ROSUVASTATIN [Concomitant]
  8. TRAVATAN [Concomitant]

REACTIONS (2)
  - Skin cancer [Not Recovered/Not Resolved]
  - Contusion [Recovered/Resolved]
